FAERS Safety Report 8398253-0 (Version None)
Quarter: 2012Q2

REPORT INFORMATION
  Report Type: 
  Country: None (occurrence: None)
  Receive Date: 20120531
  Receipt Date: 20120530
  Transmission Date: 20120825
  Serious: Yes (Hospitalization, Other)
  Sender: FDA-Public Use
  Company Number: US-AMGEN-USASP2011030640

PATIENT
  Sex: Female
  Weight: 78 kg

DRUGS (14)
  1. SPIRONOLACTONE [Concomitant]
     Dosage: UNK
  2. DIFLUCAN [Concomitant]
     Dosage: UNK
  3. LASIX [Concomitant]
     Dosage: UNK
  4. DEXAMETHASONE [Concomitant]
     Dosage: UNK
  5. ENBREL [Suspect]
     Indication: RHEUMATOID ARTHRITIS
     Dosage: 50 MG, QWK
     Dates: end: 20120101
  6. SEPTRA [Concomitant]
     Dosage: UNK
  7. RESTORIL [Concomitant]
     Dosage: UNK
  8. DILAUDID [Concomitant]
     Dosage: UNK
  9. KEPPRA [Concomitant]
     Dosage: UNK
  10. OXYCONTIN [Concomitant]
     Dosage: UNK
  11. CYMBALTA [Concomitant]
     Dosage: UNK
  12. ENBREL [Suspect]
     Dosage: 50 MG, QWK
     Dates: start: 20080101, end: 20120101
  13. PROTONIX [Concomitant]
     Dosage: UNK
  14. ZOFRAN [Concomitant]
     Dosage: UNK

REACTIONS (2)
  - GLIOBLASTOMA MULTIFORME [None]
  - PAIN [None]
